FAERS Safety Report 6766133-X (Version None)
Quarter: 2010Q2

REPORT INFORMATION
  Report Type: 
  Country: None (occurrence: None)
  Receive Date: 20100609
  Receipt Date: 20100527
  Transmission Date: 20101027
  Serious: Yes (Hospitalization)
  Sender: FDA-Public Use
  Company Number: CV20100262

PATIENT
  Age: 60 Year
  Sex: Female

DRUGS (8)
  1. PROPOFOL [Suspect]
     Indication: ANAESTHESIA
     Dates: start: 20100505
  2. AUGMENTAN (AUGMENTIN) (AUGMENTIN) [Concomitant]
  3. ATRACURIUM (ATRACURIUM) (ATRACURIUM) [Concomitant]
  4. ULTIVA (REMIFENTANIL HYDROCHLORIDE) (REMIFENTANIL HYDROCHLORIDE) [Concomitant]
  5. KETAMINE PANPHARMA (KETAMINE HYDROCHLORIDE) (KETAMINE HYDROCHLORIDE) [Concomitant]
  6. DROLEPTAN (DROPERIDOL) (DROPERIDOL0 [Concomitant]
  7. NEURONTIN [Concomitant]
  8. BETADINE (POVIDONE-IODINE) (POVIDONE-IODINE) [Concomitant]

REACTIONS (4)
  - BLOOD LACTATE DEHYDROGENASE INCREASED [None]
  - NEPHROLITHIASIS [None]
  - POST PROCEDURAL HAEMATURIA [None]
  - RENAL FAILURE ACUTE [None]
